FAERS Safety Report 18041007 (Version 1)
Quarter: 2020Q3

REPORT INFORMATION
  Report Type: Spontaneous
  Country: US (occurrence: US)
  Receive Date: 20200718
  Receipt Date: 20200718
  Transmission Date: 20201103
  Serious: Yes (Hospitalization, Other)
  Sender: FDA-Public Use
  Company Number: US-PURDUE-USA-2020-0157749

PATIENT
  Sex: Male

DRUGS (4)
  1. HYDROCODONE BITARTRATE AND ACETAMINOPHEN [Suspect]
     Active Substance: ACETAMINOPHEN\HYDROCODONE BITARTRATE
     Indication: GROIN PAIN
     Dosage: UNKNOWN
     Route: 048
     Dates: start: 20200611, end: 20200615
  2. OXYCODONE/ ACETAMINOPHEN TABLETS [Suspect]
     Active Substance: ACETAMINOPHEN\OXYCODONE HYDROCHLORIDE
     Indication: GROIN PAIN
     Dosage: 5 MG, Q4H
     Route: 048
     Dates: start: 20100608, end: 20100611
  3. PERCOCET [Suspect]
     Active Substance: ACETAMINOPHEN\OXYCODONE HYDROCHLORIDE
     Indication: GROIN PAIN
     Dosage: 5 MG, Q4H, 5/325
     Route: 048
     Dates: start: 20100615
  4. OXYCODONE/ ACETAMINOPHEN TABLETS [Suspect]
     Active Substance: ACETAMINOPHEN\OXYCODONE HYDROCHLORIDE
     Dosage: 10 MG, Q4H
     Route: 048
     Dates: start: 20100611, end: 20100615

REACTIONS (6)
  - Overdose [Unknown]
  - Pulmonary fibrosis [Not Recovered/Not Resolved]
  - Immobile [Unknown]
  - Pulmonary embolism [Unknown]
  - Deep vein thrombosis [Unknown]
  - Sedation [Unknown]

NARRATIVE: CASE EVENT DATE: 20100615
